FAERS Safety Report 7509068-7 (Version None)
Quarter: 2011Q2

REPORT INFORMATION
  Report Type: 
  Country: None (occurrence: None)
  Receive Date: 20110519
  Receipt Date: 20110329
  Transmission Date: 20111010
  Serious: Yes (Other)
  Sender: FDA-Public Use
  Company Number: 2011SP014380

PATIENT
  Age: 54 Year
  Sex: Female

DRUGS (4)
  1. CLONIDINE [Concomitant]
  2. ELOCON [Suspect]
     Indication: PRODUCT USED FOR UNKNOWN INDICATION
     Dates: start: 20110321
  3. PANTOPRAZOLE SODIUM [Concomitant]
  4. ASAPHEN [Concomitant]

REACTIONS (1)
  - APPLICATION SITE HAEMATOMA [None]
